FAERS Safety Report 8420184-8 (Version None)
Quarter: 2012Q2

REPORT INFORMATION
  Report Type: 
  Country: None (occurrence: None)
  Receive Date: 20120607
  Receipt Date: 20120525
  Transmission Date: 20120825
  Serious: Yes (Congenital Anomaly)
  Sender: FDA-Public Use
  Company Number: US-MYLANLABS-2012S1011203

PATIENT
  Sex: Female

DRUGS (2)
  1. METHOTREXATE [Suspect]
     Indication: ABORTION INDUCED
     Route: 064
  2. MISOPROSTOL [Concomitant]
     Indication: ABORTION INDUCED
     Route: 064

REACTIONS (11)
  - CONGENITAL HYDROCEPHALUS [None]
  - JOINT LAXITY [None]
  - DYSMORPHISM [None]
  - CONGENITAL SPINAL CORD ANOMALY [None]
  - SYNOSTOSIS [None]
  - MATERNAL EXPOSURE DURING PREGNANCY [None]
  - HAND DEFORMITY [None]
  - CONGENITAL JOINT MALFORMATION [None]
  - LIMB DEFORMITY [None]
  - CONGENITAL JAW MALFORMATION [None]
  - HIP DYSPLASIA [None]
